FAERS Safety Report 14149212 (Version 3)
Quarter: 2018Q2

REPORT INFORMATION
  Report Type: Spontaneous
  Country: GB (occurrence: GB)
  Receive Date: 20171101
  Receipt Date: 20180612
  Transmission Date: 20180711
  Serious: Yes (Hospitalization, Other)
  Sender: FDA-Public Use
  Company Number: GB-TEVA-820011ACC

PATIENT
  Age: 41 Year
  Sex: Male
  Weight: 96 kg

DRUGS (1)
  1. TRIMETHOPRIM TABLETS 100 MG [Suspect]
     Active Substance: TRIMETHOPRIM
     Indication: URINARY TRACT INFECTION
     Dosage: 400 MILLIGRAM DAILY;
     Route: 048
     Dates: start: 20170916, end: 20170923

REACTIONS (5)
  - Jaundice [Unknown]
  - Renal failure [Recovered/Resolved]
  - Allergic hepatitis [Recovering/Resolving]
  - Renal impairment [Unknown]
  - Tubulointerstitial nephritis [Unknown]

NARRATIVE: CASE EVENT DATE: 20171005
